FAERS Safety Report 7214764-5 (Version None)
Quarter: 2011Q1

REPORT INFORMATION
  Report Type: 
  Country: None (occurrence: None)
  Receive Date: 20110107
  Receipt Date: 20100426
  Transmission Date: 20110831
  Serious: No
  Sender: FDA-Public Use
  Company Number: A0842167A

PATIENT
  Age: 72 Year
  Sex: Female
  Weight: 59.1 kg

DRUGS (2)
  1. LIPITOR [Concomitant]
  2. LOVAZA [Suspect]
     Dosage: 2CAP TWICE PER DAY
     Route: 065

REACTIONS (6)
  - NAUSEA [None]
  - DYSGEUSIA [None]
  - ABDOMINAL DISTENSION [None]
  - ABDOMINAL PAIN UPPER [None]
  - FEELING ABNORMAL [None]
  - MALAISE [None]
